FAERS Safety Report 8234199-6 (Version None)
Quarter: 2012Q1

REPORT INFORMATION
  Report Type: 
  Country: None (occurrence: None)
  Receive Date: 20120326
  Receipt Date: 20120314
  Transmission Date: 20120608
  Serious: Yes (Hospitalization)
  Sender: FDA-Public Use
  Company Number: FR-ELI_LILLY_AND_COMPANY-FR201203006519

PATIENT
  Sex: Female

DRUGS (4)
  1. ZOLPIDEM [Concomitant]
     Indication: INSOMNIA
     Dosage: UNK, PRN
     Route: 048
     Dates: start: 19920101
  2. VITAMIN D [Concomitant]
     Indication: OSTEOPOROSIS
     Dosage: UNK UNK, OTHER
     Route: 048
     Dates: start: 20060101
  3. RALOXIFENE HYDROCHLORIDE [Suspect]
     Indication: OSTEOPOROSIS
     Dosage: 60 MG, QD
     Route: 048
     Dates: start: 20050101, end: 20060101
  4. RALOXIFENE HYDROCHLORIDE [Suspect]
     Dosage: 60 MG, QD
     Route: 048
     Dates: start: 20070101

REACTIONS (6)
  - ACUTE CORONARY SYNDROME [None]
  - ARTERIAL INJURY [None]
  - HOT FLUSH [None]
  - WEIGHT INCREASED [None]
  - BREAST ENLARGEMENT [None]
  - RASH [None]
